FAERS Safety Report 24172235 (Version 1)
Quarter: 2024Q3

REPORT INFORMATION
  Report Type: Spontaneous
  Country: US (occurrence: US)
  Receive Date: 20240805
  Receipt Date: 20240805
  Transmission Date: 20241016
  Serious: No
  Sender: Kilitch Healthcare
  Company Number: US-KHC-000068

PATIENT
  Age: 33 Year
  Sex: Female

DRUGS (1)
  1. EXTREME RELIEF LUBRICANT [Suspect]
     Active Substance: POLYETHYLENE GLYCOL 400\PROPYLENE GLYCOL
     Indication: Product used for unknown indication
     Route: 065
     Dates: start: 2023

REACTIONS (5)
  - Eye infection [Unknown]
  - Vision blurred [Unknown]
  - Asthenopia [Unknown]
  - Conjunctivitis [Unknown]
  - Recalled product administered [Unknown]

NARRATIVE: CASE EVENT DATE: 20230101
